FAERS Safety Report 6424019-4 (Version None)
Quarter: 2009Q4

REPORT INFORMATION
  Report Type: 
  Country: None (occurrence: None)
  Receive Date: 20091030
  Receipt Date: 20091030
  Transmission Date: 20100525
  Serious: Yes (Life-Threatening, Hospitalization, Other)
  Sender: FDA-Public Use
  Company Number: None

PATIENT
  Age: 45 Year
  Sex: Female
  Weight: 125.1928 kg

DRUGS (6)
  1. CYMBALTA [Suspect]
     Indication: DEPRESSION
     Dosage: 60MG QD PO
     Route: 048
     Dates: start: 20070307, end: 20090606
  2. CYMBALTA [Suspect]
     Indication: FIBROMYALGIA
     Dosage: 60MG QD PO
     Route: 048
     Dates: start: 20070307, end: 20090606
  3. CYMBALTA [Suspect]
     Indication: OBSESSIVE-COMPULSIVE DISORDER
     Dosage: 60MG QD PO
     Route: 048
     Dates: start: 20070307, end: 20090606
  4. CYMBALTA [Suspect]
     Indication: DEPRESSION
     Dosage: 60MG QD PO
     Route: 048
     Dates: start: 20090610, end: 20091015
  5. CYMBALTA [Suspect]
     Indication: FIBROMYALGIA
     Dosage: 60MG QD PO
     Route: 048
     Dates: start: 20090610, end: 20091015
  6. CYMBALTA [Suspect]
     Indication: OBSESSIVE-COMPULSIVE DISORDER
     Dosage: 60MG QD PO
     Route: 048
     Dates: start: 20090610, end: 20091015

REACTIONS (13)
  - ABDOMINAL PAIN [None]
  - ACTIVITIES OF DAILY LIVING IMPAIRED [None]
  - ANGER [None]
  - DIARRHOEA [None]
  - DIZZINESS [None]
  - EYE MOVEMENT DISORDER [None]
  - GAIT DISTURBANCE [None]
  - GASTROINTESTINAL PAIN [None]
  - INDIFFERENCE [None]
  - INSOMNIA [None]
  - LOSS OF EMPLOYMENT [None]
  - PARAESTHESIA [None]
  - SUICIDAL IDEATION [None]
